FAERS Safety Report 7901670-3 (Version None)
Quarter: 2011Q4

REPORT INFORMATION
  Report Type: 
  Country: None (occurrence: None)
  Receive Date: 20111108
  Receipt Date: 20111104
  Transmission Date: 20120403
  Serious: Yes (Death, Hospitalization)
  Sender: FDA-Public Use
  Company Number: DE-JNJFOC-20111101852

PATIENT
  Age: 79 Year
  Sex: Male

DRUGS (4)
  1. RAMIPRIL [Concomitant]
     Route: 065
  2. ABIRATERONE ACETATE [Suspect]
     Indication: PROSTATE CANCER METASTATIC
     Route: 048
     Dates: start: 20111013
  3. PANTOPRAZOLE [Concomitant]
     Route: 065
  4. BISOPROLOL [Concomitant]
     Route: 065

REACTIONS (3)
  - ACUTE HEPATIC FAILURE [None]
  - METASTASES TO LIVER [None]
  - CARDIOVASCULAR INSUFFICIENCY [None]
